FAERS Safety Report 17665719 (Version 1)
Quarter: 2020Q2

REPORT INFORMATION
  Report Type: Spontaneous
  Country: US (occurrence: US)
  Receive Date: 20200414
  Receipt Date: 20200414
  Transmission Date: 20200713
  Serious: Yes (Other)
  Sender: FDA-Public Use
  Company Number: None

PATIENT
  Age: 65 Year
  Sex: Male
  Weight: 96.75 kg

DRUGS (16)
  1. MAGNESIUM OXIDE. [Concomitant]
     Active Substance: MAGNESIUM OXIDE
  2. BENFOTIAMINE [Concomitant]
     Active Substance: BENFOTIAMINE
  3. VITAMIN D3 [Concomitant]
     Active Substance: CHOLECALCIFEROL
  4. BUPRENORPHINE TRANSDERMAL SYSTEM [Suspect]
     Active Substance: BUPRENORPHINE
     Indication: RESTLESS LEGS SYNDROME
     Dosage: ?          QUANTITY:1 PATCH(ES)?
     Route: 062
     Dates: start: 20190105
  5. AMLODIPINE [Concomitant]
     Active Substance: AMLODIPINE BESYLATE
  6. ALPHALIPOIC ACID [Concomitant]
  7. SOMNOMED [Concomitant]
  8. TADALAFIL. [Concomitant]
     Active Substance: TADALAFIL
  9. LATANOPROST. [Concomitant]
     Active Substance: LATANOPROST
  10. PREDNISOLONE ACETATE. [Concomitant]
     Active Substance: PREDNISOLONE ACETATE
  11. COSOPT [Concomitant]
     Active Substance: DORZOLAMIDE HYDROCHLORIDE\TIMOLOL MALEATE
  12. PROBIOTICS [Concomitant]
     Active Substance: PROBIOTICS NOS
  13. BUPROPION. [Concomitant]
     Active Substance: BUPROPION
  14. ATORVASTATIN [Concomitant]
     Active Substance: ATORVASTATIN
  15. FLUTICOSONE PROPIONATE NASAL SPRAY [Concomitant]
  16. ALPHAGAN P [Concomitant]
     Active Substance: BRIMONIDINE TARTRATE

REACTIONS (4)
  - Symptom recurrence [None]
  - Product substitution issue [None]
  - Drug delivery system issue [None]
  - Product adhesion issue [None]

NARRATIVE: CASE EVENT DATE: 20200412
